FAERS Safety Report 8896206 (Version 1)
Quarter: 2012Q4

REPORT INFORMATION
  Report Type: 
  Country: BR (occurrence: BR)
  Receive Date: 20121108
  Receipt Date: 20121108
  Transmission Date: 20130627
  Serious: Yes (Other)
  Sender: FDA-Public Use
  Company Number: PHHY2012BR102478

PATIENT
  Sex: Female

DRUGS (4)
  1. VALSARTAN [Suspect]
     Dosage: UNK UKN (80/20 mg), UNK
  2. VALSARTAN [Suspect]
     Dosage: UNK UKN (80/10 mg), UNK
  3. DIOVAN [Suspect]
  4. EXELON [Suspect]
     Dosage: UNK UKN, UNK
     Route: 048

REACTIONS (2)
  - Macular degeneration [Unknown]
  - Age-related macular degeneration [None]
